FAERS Safety Report 12501743 (Version 1)
Quarter: 2016Q2

REPORT INFORMATION
  Report Type: Spontaneous
  Country: CN (occurrence: CN)
  Receive Date: 20160627
  Receipt Date: 20160627
  Transmission Date: 20160815
  Serious: Yes (Death, Hospitalization)
  Sender: FDA-Public Use
  Company Number: CN-UNITED THERAPEUTICS-UNT-2015-015022

PATIENT
  Age: 42 Year
  Sex: Male
  Weight: 70.68 kg

DRUGS (1)
  1. REMODULIN [Suspect]
     Active Substance: TREPROSTINIL
     Indication: PULMONARY ARTERIAL HYPERTENSION
     Dosage: 0.005 ?G/KG/MIN, CONTINUING
     Route: 058
     Dates: start: 20151113

REACTIONS (7)
  - Pyrexia [Unknown]
  - Asthma [Unknown]
  - Vomiting [Recovering/Resolving]
  - Arrhythmia [Fatal]
  - Nausea [Recovering/Resolving]
  - Chills [Unknown]
  - Seizure [Unknown]

NARRATIVE: CASE EVENT DATE: 20151120
